FAERS Safety Report 9076586 (Version 1)
Quarter: 2013Q1

REPORT INFORMATION
  Report Type: Spontaneous
  Country: US (occurrence: US)
  Receive Date: 20130130
  Receipt Date: 20130130
  Transmission Date: 20140127
  Serious: Yes (Hospitalization)
  Sender: FDA-Public Use
  Company Number: PHEH2013US002307

PATIENT
  Sex: Male

DRUGS (6)
  1. DIOVAN [Suspect]
     Indication: BLOOD PRESSURE
     Dosage: 80 MG, QD
     Dates: start: 2010, end: 201106
  2. DIOVAN [Suspect]
     Dosage: 80 MG, QD
     Dates: start: 201109, end: 201204
  3. DIOVAN [Suspect]
     Dosage: 80 MG, QD
     Dates: start: 201211, end: 201212
  4. DIOVAN [Suspect]
     Dosage: 80 MG, BID
     Dates: start: 20121231
  5. NORVASC [Concomitant]
     Dosage: UNK UKN, UNK
  6. NORVASC [Concomitant]
     Dosage: UNK UKN, UNK
     Dates: start: 201211, end: 20121123

REACTIONS (3)
  - Type 2 diabetes mellitus [Unknown]
  - Back pain [Unknown]
  - Blood pressure abnormal [Unknown]
